FAERS Safety Report 10238096 (Version 3)
Quarter: 2017Q1

REPORT INFORMATION
  Report Type: Report from Study
  Country: FR (occurrence: FR)
  Receive Date: 20140616
  Receipt Date: 20170104
  Transmission Date: 20170428
  Serious: Yes (Hospitalization)
  Sender: FDA-Public Use
  Company Number: FR-ROCHE-1418558

PATIENT
  Age: 13 Year
  Sex: Male

DRUGS (23)
  1. SINGULAIR [Concomitant]
     Active Substance: MONTELUKAST SODIUM
     Route: 048
  2. THYROXINE [Concomitant]
     Active Substance: LEVOTHYROXINE
     Indication: ENDOCRINE DISORDER
     Route: 065
     Dates: start: 20011117
  3. FLIXOTIDE [Concomitant]
     Active Substance: FLUTICASONE PROPIONATE
     Route: 065
     Dates: start: 20031022
  4. CALCIDIA [Concomitant]
     Active Substance: CALCIUM POLYCARBOPHIL
     Indication: ENDOCRINE DISORDER
     Route: 048
     Dates: start: 20060620
  5. SOMATROPIN [Suspect]
     Active Substance: SOMATROPIN
     Route: 058
     Dates: start: 201012, end: 201207
  6. UN ALFA [Concomitant]
     Active Substance: ALFACALCIDOL
     Indication: ENDOCRINE DISORDER
     Route: 048
     Dates: start: 20060626
  7. FOSRENOL [Concomitant]
     Active Substance: LANTHANUM CARBONATE
  8. SOMATROPIN [Suspect]
     Active Substance: SOMATROPIN
     Route: 058
     Dates: start: 201307, end: 201311
  9. SOMATROPIN [Suspect]
     Active Substance: SOMATROPIN
     Route: 058
     Dates: start: 201311
  10. DITROPAN [Concomitant]
     Active Substance: OXYBUTYNIN CHLORIDE
     Route: 048
  11. SOMATROPIN [Suspect]
     Active Substance: SOMATROPIN
     Indication: FAILURE TO THRIVE
     Dosage: 10MG/2ML
     Route: 058
     Dates: start: 20080221, end: 200810
  12. SOMATROPIN [Suspect]
     Active Substance: SOMATROPIN
     Route: 058
     Dates: start: 201207, end: 201301
  13. SOMATROPIN [Suspect]
     Active Substance: SOMATROPIN
     Route: 058
     Dates: start: 201001, end: 201005
  14. SOMATROPIN [Suspect]
     Active Substance: SOMATROPIN
     Route: 058
     Dates: start: 200909, end: 201001
  15. SOMATROPIN [Suspect]
     Active Substance: SOMATROPIN
     Route: 058
     Dates: start: 201005, end: 201008
  16. SOMATROPIN [Suspect]
     Active Substance: SOMATROPIN
     Route: 058
     Dates: start: 2013, end: 201307
  17. FLAMMAZINE [Concomitant]
     Active Substance: SILVER SULFADIAZINE
  18. DECAPEPTYL [Concomitant]
     Active Substance: TRIPTORELIN
     Indication: ENDOCRINE DISORDER
     Route: 048
  19. AERIUS [Concomitant]
     Active Substance: DESLORATADINE
     Route: 048
  20. SOMATROPIN [Suspect]
     Active Substance: SOMATROPIN
     Indication: PSEUDOHYPOPARATHYROIDISM
     Route: 058
     Dates: start: 200810, end: 200906
  21. SOMATROPIN [Suspect]
     Active Substance: SOMATROPIN
     Route: 058
     Dates: start: 200906, end: 200909
  22. SOMATROPIN [Suspect]
     Active Substance: SOMATROPIN
     Route: 058
     Dates: start: 201008, end: 201012
  23. LEVOTHYROX [Concomitant]
     Active Substance: LEVOTHYROXINE
     Indication: ENDOCRINE DISORDER

REACTIONS (4)
  - Nasal septum disorder [Recovered/Resolved]
  - Sleep apnoea syndrome [Recovered/Resolved]
  - Off label use [Unknown]
  - Adenoidal hypertrophy [Recovered/Resolved]

NARRATIVE: CASE EVENT DATE: 201403
